FAERS Safety Report 10190431 (Version 1)
Quarter: 2014Q2

REPORT INFORMATION
  Report Type: Report from Study
  Country: IR (occurrence: IR)
  Receive Date: 20140522
  Receipt Date: 20140522
  Transmission Date: 20141212
  Serious: Yes (Other)
  Sender: FDA-Public Use
  Company Number: IR-BAXTER-2013BAX021555

PATIENT
  Sex: Female

DRUGS (1)
  1. KIOVIG (2,5 G/25 ML) [Suspect]
     Indication: CHRONIC INFLAMMATORY DEMYELINATING POLYRADICULONEUROPATHY
     Route: 042

REACTIONS (2)
  - Hepatitis B [Unknown]
  - Hepatitis B core antibody [Unknown]
